FAERS Safety Report 19432918 (Version 2)
Quarter: 2021Q3

REPORT INFORMATION
  Report Type: Report from Study
  Country: US (occurrence: US)
  Receive Date: 20210618
  Receipt Date: 20210712
  Transmission Date: 20211014
  Serious: Yes (Death, Hospitalization, Other)
  Sender: FDA-Public Use
  Company Number: US-ACADIA PHARMACEUTICALS INC.-ACA-2021-PIM-002164

PATIENT
  Age: 77 Year
  Sex: Male

DRUGS (17)
  1. TRAMADOL. [Concomitant]
     Active Substance: TRAMADOL
  2. AMOXICILLIN. [Concomitant]
     Active Substance: AMOXICILLIN
  3. CARBIDOPA/LEVODOPA [Concomitant]
     Active Substance: CARBIDOPA\LEVODOPA
  4. TIZANIDINE. [Concomitant]
     Active Substance: TIZANIDINE
  5. VITAMIN B12 [Concomitant]
     Active Substance: CYANOCOBALAMIN
  6. CARVEDILOL. [Concomitant]
     Active Substance: CARVEDILOL
  7. NUPLAZID [Suspect]
     Active Substance: PIMAVANSERIN TARTRATE
     Indication: PARKINSON^S DISEASE
     Dosage: 34 MILLIGRAM, QD
     Route: 048
     Dates: start: 20210507, end: 20210621
  8. DIPHENHYDRAMINE. [Concomitant]
     Active Substance: DIPHENHYDRAMINE
  9. ROPINIROLE. [Concomitant]
     Active Substance: ROPINIROLE
  10. DONEPEZIL. [Concomitant]
     Active Substance: DONEPEZIL
  11. METFORMIN [Concomitant]
     Active Substance: METFORMIN HYDROCHLORIDE
  12. NUPLAZID [Suspect]
     Active Substance: PIMAVANSERIN TARTRATE
     Indication: HALLUCINATION
  13. LORAZEPAM. [Concomitant]
     Active Substance: LORAZEPAM
  14. ROSUVASTATIN. [Concomitant]
     Active Substance: ROSUVASTATIN
  15. FORXIGA [Concomitant]
     Active Substance: DAPAGLIFLOZIN
  16. RAMIPRIL. [Concomitant]
     Active Substance: RAMIPRIL
  17. ENTACAPONE. [Concomitant]
     Active Substance: ENTACAPONE

REACTIONS (2)
  - Asthenia [Not Recovered/Not Resolved]
  - Death [Fatal]

NARRATIVE: CASE EVENT DATE: 20210531
